FAERS Safety Report 10916010 (Version 1)
Quarter: 2015Q1

REPORT INFORMATION
  Report Type: Spontaneous
  Country: US (occurrence: None)
  Receive Date: 20150311
  Receipt Date: 20150311
  Transmission Date: 20150721
  Serious: Yes (Hospitalization)
  Sender: FDA-Public Use
  Company Number: None

PATIENT
  Age: 15 Year
  Sex: Male
  Weight: 75 kg

DRUGS (1)
  1. FEIBA [Suspect]
     Active Substance: ANTI-INHIBITOR COAGULANT COMPLEX
     Indication: HAEMORRHAGE PROPHYLAXIS
     Dosage: MORE THAN ONE VIAL; DAILY/ ALSO PRN
     Route: 042
     Dates: start: 20150309, end: 20150309

REACTIONS (2)
  - Hyperhidrosis [None]
  - Dyspnoea [None]

NARRATIVE: CASE EVENT DATE: 20150309
